FAERS Safety Report 5496211-7 (Version None)
Quarter: 2007Q4

REPORT INFORMATION
  Report Type: 
  Country: None (occurrence: None)
  Receive Date: 20071025
  Receipt Date: 20070312
  Transmission Date: 20080405
  Serious: Yes (Other)
  Sender: FDA-Public Use
  Company Number: A0642852A

PATIENT
  Age: 41 Year
  Sex: Male

DRUGS (2)
  1. ADVAIR DISKUS 100/50 [Suspect]
     Dosage: 1PUFF TWICE PER DAY
     Route: 055
     Dates: start: 20070125, end: 20070308
  2. NO CONCURRENT MEDICATION [Concomitant]

REACTIONS (1)
  - HEPATIC ENZYME INCREASED [None]
